FAERS Safety Report 26121685 (Version 2)
Quarter: 2025Q4

REPORT INFORMATION
  Report Type: Spontaneous
  Country: US (occurrence: US)
  Receive Date: 20251204
  Receipt Date: 20251224
  Transmission Date: 20260118
  Serious: Yes (Death)
  Sender: MDD OPERATIONS
  Company Number: US-MDD US Operations-MDD202511-004933

PATIENT
  Age: 89 Year
  Sex: Female

DRUGS (5)
  1. APOKYN [Suspect]
     Active Substance: APOMORPHINE HYDROCHLORIDE
     Indication: Parkinson^s disease
     Dosage: 2 TO 4 TIMES A DAY
     Dates: start: 202509
  2. APOKYN [Suspect]
     Active Substance: APOMORPHINE HYDROCHLORIDE
     Dosage: AS NEEDED, SEPARATED BY AT
     Route: 058
  3. CARBIDOPA\LEVODOPA [Concomitant]
     Active Substance: CARBIDOPA\LEVODOPA
     Dosage: NOT PROVIDED
  4. SEROQUEL [Concomitant]
     Active Substance: QUETIAPINE FUMARATE
     Dosage: NOT PROVIDED
  5. AMANTADINE [Concomitant]
     Active Substance: AMANTADINE
     Dosage: NOT PROVIDED

REACTIONS (1)
  - Death [Fatal]

NARRATIVE: CASE EVENT DATE: 20251118
